FAERS Safety Report 9402082 (Version 2)
Quarter: 2013Q3

REPORT INFORMATION
  Report Type: Spontaneous
  Country: US (occurrence: US)
  Receive Date: 20130716
  Receipt Date: 20130913
  Transmission Date: 20140515
  Serious: Yes (Hospitalization)
  Sender: FDA-Public Use
  Company Number: PHEH2013US014805

PATIENT
  Sex: Male

DRUGS (2)
  1. CLOZARIL [Suspect]
     Indication: PSYCHOTIC DISORDER
     Dosage: UNK
     Route: 048
  2. CLOZARIL [Suspect]
     Dosage: 50
     Route: 048

REACTIONS (4)
  - Wound [Unknown]
  - Gangrene [Unknown]
  - Infection [Unknown]
  - White blood cell count increased [Recovered/Resolved]
